FAERS Safety Report 5135215-0 (Version None)
Quarter: 2006Q4

REPORT INFORMATION
  Report Type: 
  Country: None (occurrence: None)
  Receive Date: 20061026
  Receipt Date: 20061013
  Transmission Date: 20070319
  Serious: Yes (Disabling, Other)
  Sender: FDA-Public Use
  Company Number: CA-JNJFOC-20060800485

PATIENT
  Age: 60 Year
  Sex: Male

DRUGS (3)
  1. DURAGESIC-100 [Suspect]
     Route: 062
  2. DURAGESIC-100 [Suspect]
     Route: 062
  3. DURAGESIC-100 [Suspect]
     Indication: CANCER PAIN
     Route: 062

REACTIONS (6)
  - ANOREXIA [None]
  - CONSTIPATION [None]
  - CONVULSION [None]
  - HALLUCINATION [None]
  - NERVOUSNESS [None]
  - SOMNOLENCE [None]
